FAERS Safety Report 10660523 (Version 3)
Quarter: 2015Q1

REPORT INFORMATION
  Report Type: Spontaneous
  Country: US (occurrence: US)
  Receive Date: 20141217
  Receipt Date: 20150129
  Transmission Date: 20150720
  Serious: No
  Sender: FDA-Public Use
  Company Number: US-GLAXOSMITHKLINE-A1087293A

PATIENT
  Sex: Male

DRUGS (2)
  1. VOTRIENT [Suspect]
     Active Substance: PAZOPANIB HYDROCHLORIDE
     Dosage: 200 UNK, UNK
  2. VOTRIENT [Suspect]
     Active Substance: PAZOPANIB HYDROCHLORIDE
     Indication: SOFT TISSUE SARCOMA
     Dosage: 200 MG, UNKNOWN DOSING
     Route: 065
     Dates: start: 20140627

REACTIONS (5)
  - Vomiting [Unknown]
  - Liver function test abnormal [Unknown]
  - Nausea [Unknown]
  - Diarrhoea [Unknown]
  - Dyspnoea [Unknown]
